FAERS Safety Report 24697224 (Version 1)
Quarter: 2024Q4

REPORT INFORMATION
  Report Type: Spontaneous
  Country: CN (occurrence: CN)
  Receive Date: 20241204
  Receipt Date: 20241204
  Transmission Date: 20250114
  Serious: Yes (Hospitalization, Other)
  Sender: BAXTER
  Company Number: None

PATIENT
  Age: 48 Year
  Sex: Female
  Weight: 68 kg

DRUGS (6)
  1. CYCLOPHOSPHAMIDE [Suspect]
     Active Substance: CYCLOPHOSPHAMIDE
     Indication: Breast cancer female
     Dosage: 800 MG, ONE TIME IN ONE DAY, DILUTED WITH 0.9% SODIUM CHLORIDE INJECTION 100ML, FOR 1 CYCLE
     Route: 041
     Dates: start: 20241106, end: 20241106
  2. CYCLOPHOSPHAMIDE [Suspect]
     Active Substance: CYCLOPHOSPHAMIDE
     Indication: Chemotherapy
  3. SODIUM CHLORIDE [Suspect]
     Active Substance: SODIUM CHLORIDE
     Indication: Medication dilution
     Dosage: 100 ML (0.9% INJECTION), ONE TIME IN ONE DAY, USED TO DILUTE CYCLOPHOSPHAMIDE FOR INJECTION 800MG
     Route: 041
     Dates: start: 20241106, end: 20241106
  4. DEXTROSE [Suspect]
     Active Substance: DEXTROSE MONOHYDRATE
     Indication: Medication dilution
     Dosage: 100 ML (5% INJECTION), ONE TIME IN ONE DAY, USED TO DILUTE PIRARUBICIN HYDROCHLORIDE FOR INJECTION 8
     Route: 041
     Dates: start: 20241106, end: 20241106
  5. PIRARUBICIN HYDROCHLORIDE [Suspect]
     Active Substance: PIRARUBICIN HYDROCHLORIDE
     Indication: Breast cancer female
     Dosage: 80 MG, ONE TIME IN ONE DAY, DILUTED WITH 5% GLUCOSE INJECTION 100ML, FOR 1 CYCLE
     Route: 041
     Dates: start: 20241106, end: 20241106
  6. PIRARUBICIN HYDROCHLORIDE [Suspect]
     Active Substance: PIRARUBICIN HYDROCHLORIDE
     Indication: Chemotherapy

REACTIONS (1)
  - Myelosuppression [Recovering/Resolving]

NARRATIVE: CASE EVENT DATE: 20241112
